FAERS Safety Report 9080311 (Version 4)
Quarter: 2013Q1

REPORT INFORMATION
  Report Type: Spontaneous
  Country: JP (occurrence: JP)
  Receive Date: 20130218
  Receipt Date: 20130322
  Transmission Date: 20140127
  Serious: Yes (Hospitalization)
  Sender: FDA-Public Use
  Company Number: JP-MPIJNJ-2013-01182

PATIENT
  Sex: 0

DRUGS (2)
  1. VELCADE [Suspect]
     Indication: PRODUCT USED FOR UNKNOWN INDICATION
     Dosage: 1 MG/M2, UNK
     Route: 042
     Dates: start: 20121107, end: 20130116
  2. DEXAMETHASONE [Concomitant]
     Dosage: 10 MG, UNK
     Route: 042
     Dates: start: 20121107, end: 20130116

REACTIONS (2)
  - Cardiac failure [Recovering/Resolving]
  - Urine output decreased [Recovered/Resolved]
